FAERS Safety Report 7563877-7 (Version None)
Quarter: 2011Q2

REPORT INFORMATION
  Report Type: 
  Country: None (occurrence: None)
  Receive Date: 20110622
  Receipt Date: 20100928
  Transmission Date: 20111010
  Serious: Yes (Other)
  Sender: FDA-Public Use
  Company Number: PT-PFIZER INC-2010123468

PATIENT
  Sex: Female

DRUGS (3)
  1. AMLODIPINE [Concomitant]
  2. SUTENT [Suspect]
     Indication: METASTATIC RENAL CELL CARCINOMA
     Dosage: 50 MG, 1X/DAY, 4 WEEKS ON,/2 WEEKS OFF
     Route: 048
     Dates: start: 20071101, end: 20080501
  3. IRBESARTAN [Concomitant]

REACTIONS (3)
  - PERICARDIAL EFFUSION [None]
  - PLEURAL EFFUSION [None]
  - HYPERTENSIVE CRISIS [None]
